FAERS Safety Report 14927411 (Version 1)
Quarter: 2018Q2

REPORT INFORMATION
  Report Type: Spontaneous
  Country: US (occurrence: US)
  Receive Date: 20180504
  Receipt Date: 20180504
  Transmission Date: 20180711
  Serious: Yes (Hospitalization)
  Sender: FDA-Public Use
  Company Number: None

PATIENT
  Sex: Female
  Weight: 89.81 kg

DRUGS (3)
  1. LENALIDOMIDE (CC-5013) [Suspect]
     Active Substance: LENALIDOMIDE
     Dates: end: 20180419
  2. VELCADE [Suspect]
     Active Substance: BORTEZOMIB
     Dates: end: 20180416
  3. DEXAMETHASONE. [Suspect]
     Active Substance: DEXAMETHASONE
     Dates: end: 20180417

REACTIONS (3)
  - Dyspnoea [None]
  - Blood creatinine increased [None]
  - Haemoglobin decreased [None]

NARRATIVE: CASE EVENT DATE: 20180427
